FAERS Safety Report 7018834-6 (Version None)
Quarter: 2010Q3

REPORT INFORMATION
  Report Type: 
  Country: None (occurrence: None)
  Receive Date: 20100928
  Receipt Date: 20100917
  Transmission Date: 20110219
  Serious: Yes (Hospitalization, Other)
  Sender: FDA-Public Use
  Company Number: CA-PFIZER INC-2010118088

PATIENT
  Age: 36 Year
  Sex: Male

DRUGS (5)
  1. LYRICA [Suspect]
     Dosage: 75 MG, 3X/DAY
     Dates: start: 20100101
  2. METHADONE [Concomitant]
     Dosage: 1 MG/ML, 5 MG IN THE MORNING, 5 MG IN EVENING
  3. OXYCODONE [Concomitant]
     Dosage: 10 MG,TWO TIMES PER DAY, AS NEEDED
  4. OXYCONTIN [Concomitant]
     Dosage: 30 MG, TWO TIMES PER DAY AND 50 MG AT  BEDTIME
  5. CESAMET [Concomitant]
     Dosage: 1 TABLET AT BEDTIME

REACTIONS (4)
  - AUTONOMIC DYSREFLEXIA [None]
  - DRUG INEFFECTIVE [None]
  - DRUG WITHDRAWAL SYNDROME [None]
  - MYOCARDIAL INFARCTION [None]
